FAERS Safety Report 4410009-X (Version None)
Quarter: 2004Q3

REPORT INFORMATION
  Report Type: 
  Country: None (occurrence: None)
  Receive Date: 20040726
  Receipt Date: 20040720
  Transmission Date: 20050211
  Serious: Yes (Life-Threatening, Hospitalization)
  Sender: FDA-Public Use
  Company Number: 2004-06-0093

PATIENT
  Age: 62 Year
  Sex: Female
  Weight: 56 kg

DRUGS (6)
  1. REBETOL [Suspect]
     Indication: HEPATITIS C
     Dosage: 600 MG ORAL
     Route: 048
     Dates: start: 20040224, end: 20040326
  2. INTRON A [Suspect]
     Indication: HEPATITIS C
     Dosage: SEE IMAGE
     Route: 030
     Dates: start: 20040224, end: 20040308
  3. INTRON A [Suspect]
     Indication: HEPATITIS C
     Dosage: SEE IMAGE
     Route: 030
     Dates: start: 20040310, end: 20040326
  4. URSO [Concomitant]
  5. GLYCYRON [Concomitant]
  6. GASTER [Concomitant]

REACTIONS (12)
  - BUNDLE BRANCH BLOCK LEFT [None]
  - CARDIAC FAILURE [None]
  - CARDIOMYOPATHY [None]
  - CONDUCTION DISORDER [None]
  - ELECTROCARDIOGRAM QT PROLONGED [None]
  - HEADACHE [None]
  - HYPOKINESIA [None]
  - INTERSTITIAL LUNG DISEASE [None]
  - NAUSEA [None]
  - PHARYNGOLARYNGEAL PAIN [None]
  - PLEURAL EFFUSION [None]
  - PULMONARY CONGESTION [None]
